FAERS Safety Report 5342936-3 (Version None)
Quarter: 2007Q2

REPORT INFORMATION
  Report Type: 
  Country: None (occurrence: None)
  Receive Date: 20070416
  Receipt Date: 20070215
  Transmission Date: 20071010
  Serious: No
  Sender: FDA-Public Use
  Company Number: 2007SP000523

PATIENT
  Age: 53 Year
  Sex: Male

DRUGS (3)
  1. LUNESTA [Suspect]
     Dosage: SEE IMAGE
     Dates: start: 20070210, end: 20070210
  2. LUNESTA [Suspect]
     Dosage: SEE IMAGE
     Dates: start: 20070211, end: 20070211
  3. LUNESTA [Suspect]
     Dosage: SEE IMAGE
     Dates: start: 20070212, end: 20070212

REACTIONS (2)
  - DRUG INEFFECTIVE [None]
  - INSOMNIA [None]
